FAERS Safety Report 4915839-3 (Version None)
Quarter: 2006Q1

REPORT INFORMATION
  Report Type: 
  Country: None (occurrence: None)
  Receive Date: 20060214
  Receipt Date: 20060131
  Transmission Date: 20060701
  Serious: Yes (Death)
  Sender: FDA-Public Use
  Company Number: P200600001

PATIENT
  Sex: Male

DRUGS (1)
  1. PLENAXIS [Suspect]

REACTIONS (1)
  - UROSEPSIS [None]
